FAERS Safety Report 10386043 (Version 1)
Quarter: 2014Q1

REPORT INFORMATION
  Report Type: Spontaneous
  Country: US (occurrence: None)
  Receive Date: 20140306
  Receipt Date: 20140306
  Transmission Date: 20141002
  Serious: Yes (Other)
  Sender: FDA-Public Use
  Company Number: 163-21880-13071045

PATIENT
  Age: 88 Year
  Sex: Female

DRUGS (8)
  1. REVLIMID ( LENALIDOMIDE) ( 5 MILLIGRAM, CAPSULES) [Suspect]
     Indication: PLASMA CELL MYELOMA
     Dosage: 5MG, 21 IN 28 D, PO
     Route: 048
     Dates: start: 20130412
  2. LASIX (FUROSEMIDE) (TABLETS) [Concomitant]
  3. LIPITOR (ATORVASTATIN) (TABLETS) [Concomitant]
  4. CARVEDILOL (TABLETS) [Concomitant]
  5. ASPIRIN (ACETYLSALICYLIC ACID) (ENTERIC-COATED TABLET) [Concomitant]
  6. SERTRALINE HCL (TABLETS) [Concomitant]
  7. VENTOLIN HFA (SALBUTAMOL SULFATE) (INHALANT) [Concomitant]
  8. VASOTEC (ENALAPRIL MALEATE) (TABLETS) [Concomitant]

REACTIONS (2)
  - Restless legs syndrome [None]
  - Blood potassium decreased [None]
